FAERS Safety Report 23184861 (Version 1)
Quarter: 2023Q4

REPORT INFORMATION
  Report Type: Spontaneous
  Country: US (occurrence: US)
  Receive Date: 20231115
  Receipt Date: 20231115
  Transmission Date: 20240110
  Serious: Yes (Other)
  Sender: FDA-Public Use
  Company Number: US-drreddys-LIT/USA/23/0183384

PATIENT
  Age: 52 Year
  Sex: Male

DRUGS (5)
  1. TIMOLOL MALEATE [Suspect]
     Active Substance: TIMOLOL MALEATE
     Indication: Open angle glaucoma
     Dosage: UNK
  2. BIMATOPROST [Suspect]
     Active Substance: BIMATOPROST
     Indication: Open angle glaucoma
     Dosage: UNK
  3. BRIMONIDINE TARTRATE\BRINZOLAMIDE [Suspect]
     Active Substance: BRIMONIDINE TARTRATE\BRINZOLAMIDE
     Indication: Open angle glaucoma
     Dosage: UNK
  4. BROMFENAC [Suspect]
     Active Substance: BROMFENAC SODIUM
     Indication: Open angle glaucoma
     Dosage: UNK
  5. FLUOROMETHOLONE [Suspect]
     Active Substance: FLUOROMETHOLONE
     Indication: Intraocular pressure increased
     Dosage: UNK

REACTIONS (5)
  - Superior vena cava syndrome [Unknown]
  - Diffuse large B-cell lymphoma [Unknown]
  - Macular oedema [Unknown]
  - Intraocular pressure increased [Recovering/Resolving]
  - Drug ineffective [Unknown]
